FAERS Safety Report 17735152 (Version 1)
Quarter: 2020Q2

REPORT INFORMATION
  Report Type: Spontaneous
  Country: US (occurrence: US)
  Receive Date: 20200501
  Receipt Date: 20200501
  Transmission Date: 20200714
  Serious: No
  Sender: FDA-Public Use
  Company Number: US-TEVA-2020-US-1227384

PATIENT

DRUGS (1)
  1. NORTRIPTYLINE [Suspect]
     Active Substance: NORTRIPTYLINE
     Indication: BLADDER SPASM
     Dosage: 2 DOSAGE FORMS DAILY;
     Route: 048

REACTIONS (3)
  - Drug ineffective [Unknown]
  - Product quality issue [Unknown]
  - Bladder disorder [Unknown]

NARRATIVE: CASE EVENT DATE: 202004
